FAERS Safety Report 7098776-0 (Version None)
Quarter: 2010Q4

REPORT INFORMATION
  Report Type: 
  Country: None (occurrence: None)
  Receive Date: 20101112
  Receipt Date: 20101105
  Transmission Date: 20110411
  Serious: Yes (Hospitalization)
  Sender: FDA-Public Use
  Company Number: IT-ROCHE-728864

PATIENT
  Sex: Female

DRUGS (4)
  1. TORADOL [Suspect]
     Dosage: DOSE AND FREQUENCY: UNKNOWN.
     Route: 042
     Dates: start: 20100727, end: 20100727
  2. SPASMEX (TROSPIUM CHLORIDE) [Suspect]
     Indication: RENAL COLIC
     Dosage: DOSE AND FREQUENCY: UNKNOWN. IT WAS GIVEN INTRAVENOUSLY AND IN FORM OF TABLET.
     Route: 042
     Dates: start: 20100727, end: 20100728
  3. ARTROSILENE [Suspect]
     Dosage: DOSE AND FREQUENCY: UNKNOWN.
     Route: 042
     Dates: start: 20100727, end: 20100727
  4. ZANTAC [Concomitant]
     Dosage: ZANTAC (RANITIDINE HYDROCHLORIDE) SOLUTION FOR INJECTION FOR INTRAVENOUS USE, 50MG/ 5ML
     Route: 042
     Dates: start: 20100727, end: 20100727

REACTIONS (3)
  - CHEST PAIN [None]
  - LARYNGOSPASM [None]
  - RASH GENERALISED [None]
